FAERS Safety Report 15522813 (Version 1)
Quarter: 2018Q4

REPORT INFORMATION
  Report Type: Spontaneous
  Country: US (occurrence: US)
  Receive Date: 20181013
  Receipt Date: 20181013
  Transmission Date: 20190205
  Serious: Yes (Other)
  Sender: FDA-Public Use
  Company Number: None

PATIENT
  Age: 66 Year
  Sex: Male
  Weight: 117 kg

DRUGS (18)
  1. TRIFLUOPERAZINE [Suspect]
     Active Substance: TRIFLUOPERAZINE\TRIFLUOPERAZINE HYDROCHLORIDE
     Indication: ANXIETY
     Dosage: ?          QUANTITY:1 TABLET(S);?
     Route: 048
     Dates: start: 19730101, end: 20181001
  2. LOVASTATIN. [Concomitant]
     Active Substance: LOVASTATIN
  3. FLONASE EQUIVALENT [Concomitant]
  4. KETOCONAZOLE CREAM [Concomitant]
     Active Substance: KETOCONAZOLE
  5. ANTI INFLAMMATORY ROLL ON [Concomitant]
  6. LOSARTAN. [Concomitant]
     Active Substance: LOSARTAN
  7. VITAMIN D [Concomitant]
     Active Substance: CHOLECALCIFEROL
  8. VITAMIN C [Concomitant]
     Active Substance: ASCORBIC ACID
  9. ANTI GAS AND BLOATING [Concomitant]
  10. NEBULIZER [Concomitant]
     Active Substance: DEVICE
  11. VENTOLIN [Concomitant]
     Active Substance: ALBUTEROL SULFATE
  12. OMEPRAZOLE. [Concomitant]
     Active Substance: OMEPRAZOLE
  13. ACETAMINOPHEN. [Concomitant]
     Active Substance: ACETAMINOPHEN
  14. ANGLODIPINE [Concomitant]
  15. KETOCONAZOLE SHAMPOO [Concomitant]
     Active Substance: KETOCONAZOLE
  16. TRIFLUOPERAZINE [Suspect]
     Active Substance: TRIFLUOPERAZINE\TRIFLUOPERAZINE HYDROCHLORIDE
     Indication: SCHIZOPHRENIA
     Dosage: ?          QUANTITY:1 TABLET(S);?
     Route: 048
     Dates: start: 19730101, end: 20181001
  17. BENZTROPINE EQUIVALENT [Concomitant]
  18. CPAP [Concomitant]
     Active Substance: DEVICE

REACTIONS (8)
  - Dry mouth [None]
  - Oropharyngeal pain [None]
  - Back pain [None]
  - Disorientation [None]
  - Restless legs syndrome [None]
  - Rash [None]
  - Skin exfoliation [None]
  - Sleep apnoea syndrome [None]

NARRATIVE: CASE EVENT DATE: 20181001
